FAERS Safety Report 12579674 (Version 1)
Quarter: 2016Q3

REPORT INFORMATION
  Report Type: Spontaneous
  Country: HR (occurrence: HR)
  Receive Date: 20160721
  Receipt Date: 20160721
  Transmission Date: 20161109
  Serious: Yes (Other)
  Sender: FDA-Public Use
  Company Number: HR-TEVA-677014ACC

PATIENT
  Age: 39 Year
  Sex: Female

DRUGS (1)
  1. KLAVOCIN BID TABLETE 1 G [Suspect]
     Active Substance: AMOXICILLIN\CLAVULANIC ACID
     Indication: CELLULITIS
     Dosage: 2 GRAM DAILY;
     Route: 048
     Dates: start: 20160701, end: 20160701

REACTIONS (3)
  - Somnolence [Recovering/Resolving]
  - Thirst [Recovering/Resolving]
  - Swollen tongue [Recovering/Resolving]

NARRATIVE: CASE EVENT DATE: 20160701
